FAERS Safety Report 6431433-X (Version None)
Quarter: 2009Q4

REPORT INFORMATION
  Report Type: 
  Country: None (occurrence: None)
  Receive Date: 20091106
  Receipt Date: 20091103
  Transmission Date: 20100525
  Serious: Yes (Death, Hospitalization)
  Sender: FDA-Public Use
  Company Number: PHEH2009US10299

PATIENT
  Sex: Female

DRUGS (3)
  1. SANDOSTATIN LAR [Suspect]
     Indication: DIARRHOEA
     Dosage: 20 MG, QMO
     Route: 030
     Dates: start: 20080804, end: 20090108
  2. SANDOSTATIN [Suspect]
     Indication: DIARRHOEA
     Dosage: 50 MG, ONCE/SINGLE
     Route: 058
     Dates: start: 20080414, end: 20080414
  3. VERAPAMIL [Concomitant]
     Indication: ISCHAEMIC HEART DISEASE PROPHYLAXIS
     Dosage: 360 MG, UNK
     Route: 048
     Dates: end: 20090201

REACTIONS (7)
  - CARCINOID TUMOUR [None]
  - GALLBLADDER OBSTRUCTION [None]
  - MALIGNANT NEOPLASM PROGRESSION [None]
  - NAUSEA [None]
  - OBSTRUCTION GASTRIC [None]
  - PAIN [None]
  - VOMITING [None]
